FAERS Safety Report 7197530-9 (Version None)
Quarter: 2010Q4

REPORT INFORMATION
  Report Type: 
  Country: None (occurrence: None)
  Receive Date: 20101227
  Receipt Date: 20101213
  Transmission Date: 20110411
  Serious: Yes (Other)
  Sender: FDA-Public Use
  Company Number: US-RANBAXY-2010RR-40649

PATIENT
  Sex: Female
  Weight: 70 kg

DRUGS (3)
  1. CIPROFLAXACIN [Suspect]
     Indication: BACTERIAL INFECTION
     Route: 065
  2. LEVAQUIN [Suspect]
     Indication: SINUSITIS
     Dosage: UNK
     Route: 048
     Dates: start: 20030701
  3. METHYLPREDNISOLONE [Suspect]
     Indication: ANTIINFLAMMATORY THERAPY
     Route: 065

REACTIONS (1)
  - TENOSYNOVITIS STENOSANS [None]
